FAERS Safety Report 8873919 (Version 1)
Quarter: 2012Q4

REPORT INFORMATION
  Report Type: Report from Study
  Country: US (occurrence: US)
  Receive Date: 20121030
  Receipt Date: 20121030
  Transmission Date: 20130627
  Serious: Yes (Congenital Anomaly)
  Sender: FDA-Public Use
  Company Number: US-ABBOTT-12P-163-0999050-00

PATIENT

DRUGS (1)
  1. HUMIRA [Suspect]
     Indication: MATERNAL EXPOSURE TIMING UNSPECIFIED
     Route: 064

REACTIONS (9)
  - Atrial flutter [Unknown]
  - Foetal exposure during pregnancy [Unknown]
  - Cardiac aneurysm [Unknown]
  - Patent ductus arteriosus [Recovered/Resolved]
  - Tricuspid valve incompetence [Not Recovered/Not Resolved]
  - Hydronephrosis [Unknown]
  - Supraventricular extrasystoles [Unknown]
  - Premature baby [Unknown]
  - Shunt aneurysm [Unknown]
